FAERS Safety Report 6938745-1 (Version None)
Quarter: 2010Q3

REPORT INFORMATION
  Report Type: 
  Country: None (occurrence: None)
  Receive Date: 20100820
  Receipt Date: 20100804
  Transmission Date: 20110219
  Serious: Yes (Other)
  Sender: FDA-Public Use
  Company Number: JPI-P-011784

PATIENT
  Age: 56 Year
  Sex: Female
  Weight: 69.8539 kg

DRUGS (7)
  1. XYREM [Suspect]
     Indication: FIBROMYALGIA
     Dosage: 2 IN 1 D, ORAL
     Route: 048
     Dates: start: 20080901
  2. PREGABALIN [Concomitant]
  3. DULOXETINE HYDROCHLORIDE [Concomitant]
  4. TRAZODONE HYDROCHLORIDE [Concomitant]
  5. TRAMADOL HCL [Concomitant]
  6. METOPROLOL SUCCINATE [Concomitant]
  7. ATOMOXETINE HCL [Concomitant]

REACTIONS (3)
  - ABNORMAL DREAMS [None]
  - NIGHTMARE [None]
  - SCIATICA [None]
